FAERS Safety Report 6401514-5 (Version None)
Quarter: 2009Q4

REPORT INFORMATION
  Report Type: 
  Country: None (occurrence: None)
  Receive Date: 20091009
  Receipt Date: 20091001
  Transmission Date: 20100525
  Serious: Yes (Life-Threatening)
  Sender: FDA-Public Use
  Company Number: 1-20306052

PATIENT
  Age: 73 Year
  Sex: Male

DRUGS (4)
  1. FENTANYL-100 [Suspect]
     Indication: PAIN
     Dosage: 0-16 PER HOUR, EPIDRUAL
     Route: 008
     Dates: start: 20090826, end: 20090827
  2. LEVOBUPIVACAINE [Suspect]
     Indication: PAIN
     Dosage: 0-16 PER HOUR, EPIDURAL
     Route: 008
     Dates: start: 20090826, end: 20090827
  3. CYCLIZINE (MANUFACTURER UNKNOWN) [Suspect]
     Indication: PROCEDURAL NAUSEA
     Dosage: 50 MG, UNK, INTRAVENOUS
     Route: 042
     Dates: start: 20090826, end: 20090827
  4. ONDANSETRON [Concomitant]

REACTIONS (1)
  - TRANSIENT ISCHAEMIC ATTACK [None]
